FAERS Safety Report 12995909 (Version 1)
Quarter: 2016Q4

REPORT INFORMATION
  Report Type: Spontaneous
  Country: DE (occurrence: DE)
  Receive Date: 20161202
  Receipt Date: 20161202
  Transmission Date: 20170207
  Serious: Yes (Hospitalization, Other)
  Sender: FDA-Public Use
  Company Number: DE-ELI_LILLY_AND_COMPANY-DE201611008943

PATIENT
  Age: 0 Day
  Sex: Male

DRUGS (4)
  1. OLANZAPINE. [Suspect]
     Active Substance: OLANZAPINE
     Indication: PSYCHOTIC DISORDER
     Dosage: 10 MG, QD
     Route: 048
     Dates: start: 20160327, end: 20160328
  2. OLANZAPINE. [Suspect]
     Active Substance: OLANZAPINE
     Dosage: 2.5 MG, QD
     Route: 048
     Dates: start: 20160330, end: 20160405
  3. OLANZAPINE. [Suspect]
     Active Substance: OLANZAPINE
     Dosage: 5 MG, QD
     Route: 048
     Dates: start: 20160329
  4. NITOMAN [Concomitant]
     Active Substance: TETRABENAZINE
     Dosage: 75 MG, QD
     Route: 048
     Dates: start: 20160301

REACTIONS (5)
  - Sleep disorder [Unknown]
  - Tardive dyskinesia [Recovering/Resolving]
  - Hyperkinesia [Unknown]
  - Dizziness [Unknown]
  - Torticollis [Unknown]

NARRATIVE: CASE EVENT DATE: 20160328
